FAERS Safety Report 5460555-5 (Version None)
Quarter: 2007Q3

REPORT INFORMATION
  Report Type: 
  Country: None (occurrence: None)
  Receive Date: 20070919
  Receipt Date: 20070907
  Transmission Date: 20080115
  Serious: Yes (Other)
  Sender: FDA-Public Use
  Company Number: GB-PFIZER INC-2006102293

PATIENT
  Sex: Male
  Weight: 76.2 kg

DRUGS (6)
  1. SU-011,248 [Suspect]
     Indication: RENAL CELL CARCINOMA STAGE UNSPECIFIED
     Route: 048
  2. SU-011,248 [Suspect]
     Route: 048
  3. CIPROFLOXACIN [Concomitant]
     Route: 048
     Dates: start: 20060814, end: 20060821
  4. ARTHROTEC [Concomitant]
     Route: 048
     Dates: start: 20040101
  5. GLUCOSAMINE [Concomitant]
     Route: 048
     Dates: start: 20060101
  6. COD LIVER OIL/TOCOPHERYL ACETATE [Concomitant]
     Route: 048
     Dates: start: 20060101

REACTIONS (1)
  - HEPATOTOXICITY [None]
